FAERS Safety Report 10219126 (Version 1)
Quarter: 2014Q2

REPORT INFORMATION
  Report Type: Spontaneous
  Country: CH (occurrence: CH)
  Receive Date: 20140605
  Receipt Date: 20140605
  Transmission Date: 20141212
  Serious: Yes (Hospitalization, Other)
  Sender: FDA-Public Use
  Company Number: CH-ASTRAZENECA-2014SE37014

PATIENT
  Age: 13 Year
  Sex: Male

DRUGS (10)
  1. NEXIUM [Suspect]
     Dosage: 60 MG (1 MG/KG) 1X/DAY
     Route: 048
  2. METHOTREXATE [Suspect]
     Dosage: 32.5 MG 1X/WEEK (NO FOLIC ACID)
     Route: 065
  3. PURINETHOL [Suspect]
     Dosage: 125 MG (2MG/KG) 1X/DAY PER OS  5 DAYS/WEEK
     Route: 048
  4. PURINETHOL [Suspect]
     Dosage: 100 MG (1 6MG/KG 1X/DAY PER OS  2X/WEEK SATURDAY AND SUNDAY
     Route: 048
  5. PURINETHOL [Suspect]
     Dosage: FIRST CYCLE OF CHEMOTHERAPY
     Route: 048
     Dates: start: 20131007, end: 20131013
  6. PURINETHOL [Suspect]
     Dosage: SECOND CYCLE OF CHEMOTHERAPY
     Route: 048
     Dates: start: 20131107, end: 20131113
  7. PENTAMIDINE [Suspect]
     Dosage: 1X/3 WEEKS, LAST DOSE ON 30 SEPTEMBER
     Route: 065
     Dates: start: 20130826
  8. VINCRISTINE [Suspect]
     Dosage: FIRST CYCLE OF CHEMOTHERAPY
     Route: 065
     Dates: start: 20131007, end: 20131013
  9. VINCRISTINE [Suspect]
     Dosage: SECOND CYCLE OF CHEMOTHERAPY
     Route: 065
     Dates: start: 20131107, end: 20131113
  10. MENADION [Concomitant]
     Route: 048
     Dates: start: 20131107

REACTIONS (3)
  - Pancreatitis acute [Recovered/Resolved]
  - Haematoma [Unknown]
  - Pancytopenia [Unknown]
